FAERS Safety Report 25155434 (Version 2)
Quarter: 2025Q3

REPORT INFORMATION
  Report Type: Spontaneous
  Country: US (occurrence: US)
  Receive Date: 20250403
  Receipt Date: 20250701
  Transmission Date: 20251020
  Serious: No
  Sender: ADVANZ PHARMA
  Company Number: US-ADVANZ PHARMA-202503002145

PATIENT

DRUGS (2)
  1. PHOTOFRIN [Suspect]
     Active Substance: PORFIMER SODIUM
     Indication: Metastatic renal cell carcinoma
  2. PHOTOFRIN [Suspect]
     Active Substance: PORFIMER SODIUM
     Indication: Lung cancer metastatic

REACTIONS (3)
  - Foreign body in respiratory tract [Unknown]
  - Device breakage [Unknown]
  - Off label use [Unknown]

NARRATIVE: CASE EVENT DATE: 20250320
